FAERS Safety Report 9426480 (Version 1)
Quarter: 2013Q3

REPORT INFORMATION
  Report Type: Spontaneous
  Country: US (occurrence: None)
  Receive Date: 20130729
  Receipt Date: 20130729
  Transmission Date: 20140515
  Serious: No
  Sender: FDA-Public Use
  Company Number: None

PATIENT
  Age: 17 Year
  Sex: Male
  Weight: 61.3 kg

DRUGS (1)
  1. HALDOL [Suspect]
     Route: 048
     Dates: start: 20130724, end: 20130726

REACTIONS (2)
  - Musculoskeletal stiffness [None]
  - Musculoskeletal stiffness [None]
